FAERS Safety Report 18083841 (Version 3)
Quarter: 2020Q4

REPORT INFORMATION
  Report Type: Spontaneous
  Country: US (occurrence: US)
  Receive Date: 20200728
  Receipt Date: 20201201
  Transmission Date: 20210113
  Serious: Yes (Other)
  Sender: FDA-Public Use
  Company Number: US-ROCHE-2647943

PATIENT
  Age: 26 Year
  Sex: Female
  Weight: 79.9 kg

DRUGS (7)
  1. ZYRTEC (UNITED STATES) [Concomitant]
     Route: 048
     Dates: start: 20190508, end: 20200304
  2. NASACORT [Concomitant]
     Active Substance: TRIAMCINOLONE ACETONIDE
     Route: 045
     Dates: start: 20190508, end: 20200304
  3. SINGULAIR [Concomitant]
     Active Substance: MONTELUKAST SODIUM
     Route: 048
     Dates: start: 20190508, end: 20200304
  4. RHINOCORT SPRAY [Concomitant]
     Route: 045
     Dates: start: 202003
  5. XOLAIR [Suspect]
     Active Substance: OMALIZUMAB
     Indication: IDIOPATHIC URTICARIA
     Route: 058
     Dates: start: 20190828, end: 20200429
  6. CLARITIN [Concomitant]
     Active Substance: LORATADINE
     Indication: CHRONIC SPONTANEOUS URTICARIA
     Route: 048
     Dates: start: 20200304
  7. ALLEGRA [Concomitant]
     Active Substance: FEXOFENADINE HYDROCHLORIDE
     Route: 048
     Dates: start: 20190508, end: 20200304

REACTIONS (3)
  - Thrombosis [Recovering/Resolving]
  - Urticaria [Unknown]
  - Maternal exposure during pregnancy [Unknown]

NARRATIVE: CASE EVENT DATE: 20200324
